FAERS Safety Report 16726743 (Version 2)
Quarter: 2020Q4

REPORT INFORMATION
  Report Type: Spontaneous
  Country: US (occurrence: US)
  Receive Date: 20190821
  Receipt Date: 20201215
  Transmission Date: 20210113
  Serious: Yes (Other)
  Sender: FDA-Public Use
  Company Number: US-NOVOPROD-679657

PATIENT
  Age: 58 Year
  Sex: Female

DRUGS (1)
  1. NOVOLOG [Suspect]
     Active Substance: INSULIN ASPART
     Indication: TYPE 2 DIABETES MELLITUS
     Dosage: TAKES 3 TIMES A DAY DOSAGE DEPENDS ON SUGAR LEVELS
     Route: 058
     Dates: start: 2004

REACTIONS (1)
  - End stage renal disease [Recovered/Resolved]

NARRATIVE: CASE EVENT DATE: 2012
